FAERS Safety Report 25761609 (Version 2)
Quarter: 2025Q3

REPORT INFORMATION
  Report Type: Spontaneous
  Country: EU (occurrence: EU)
  Receive Date: 20250904
  Receipt Date: 20250915
  Transmission Date: 20251020
  Serious: Yes (Life-Threatening, Other)
  Sender: MERCK SHARP & DOHME LLC
  Company Number: EU-009507513-2324987

PATIENT
  Age: 75 Year
  Sex: Female
  Weight: 45 kg

DRUGS (3)
  1. PEMBROLIZUMAB [Suspect]
     Active Substance: PEMBROLIZUMAB
     Indication: Adenocarcinoma of colon
     Route: 042
     Dates: start: 20241106, end: 20241127
  2. Luvion [Concomitant]
     Indication: Hypertension
     Route: 048
  3. ALDACTONE [Concomitant]
     Active Substance: SPIRONOLACTONE
     Indication: Hypertension
     Route: 048

REACTIONS (1)
  - Hypercalcaemia [Recovered/Resolved with Sequelae]

NARRATIVE: CASE EVENT DATE: 20241128
